FAERS Safety Report 12346649 (Version 3)
Quarter: 2016Q2

REPORT INFORMATION
  Report Type: Spontaneous
  Country: PT (occurrence: PT)
  Receive Date: 20160509
  Receipt Date: 20160518
  Transmission Date: 20160815
  Serious: Yes (Other)
  Sender: FDA-Public Use
  Company Number: PT-ASTELLAS-2016US017275

PATIENT
  Age: 69 Year
  Sex: Female

DRUGS (8)
  1. BEN-U-RON [Concomitant]
     Indication: PAIN
     Dosage: UNK UNK, AS NEEDED
     Route: 048
  2. URISPAS [Concomitant]
     Active Substance: FLAVOXATE HYDROCHLORIDE
     Indication: URINARY TRACT INFECTION
     Dosage: UNK UNK, AS NEEDED WHEN PATIENT EXPERIENCED URINARY TRACT INFECTIONS
     Route: 048
  3. LASIX [Concomitant]
     Active Substance: FUROSEMIDE
     Indication: DIURETIC THERAPY
     Dosage: UNK UNK, UNKNOWN FREQ.
     Route: 048
  4. NOLOTIL                            /06276702/ [Concomitant]
     Indication: PAIN
     Dosage: UNK UNK, AS NEEDED
     Route: 048
  5. ROSILAN [Concomitant]
     Active Substance: DEFLAZACORT
     Indication: SYSTEMIC LUPUS ERYTHEMATOSUS
     Dosage: UNK UNK, UNKNOWN FREQ.
     Route: 048
  6. AAS [Concomitant]
     Active Substance: ASPIRIN
     Indication: ANTIPLATELET THERAPY
     Route: 048
  7. INIBACE [Concomitant]
     Indication: HYPERTENSION
     Dosage: UNK UNK, UNKNOWN FREQ.
     Route: 048
  8. BETMIGA [Suspect]
     Active Substance: MIRABEGRON
     Indication: URINARY INCONTINENCE
     Route: 048
     Dates: start: 20160422, end: 20160504

REACTIONS (3)
  - Joint swelling [Recovering/Resolving]
  - Drug ineffective [Unknown]
  - Skin oedema [Recovering/Resolving]

NARRATIVE: CASE EVENT DATE: 20160426
